FAERS Safety Report 5595264-5 (Version None)
Quarter: 2008Q1

REPORT INFORMATION
  Report Type: 
  Country: None (occurrence: None)
  Receive Date: 20080117
  Receipt Date: 20080110
  Transmission Date: 20080703
  Serious: Yes (Other)
  Sender: FDA-Public Use
  Company Number: FR-PFIZER INC-2008003854

PATIENT

DRUGS (1)
  1. CHANTIX [Suspect]

REACTIONS (1)
  - COLITIS ULCERATIVE [None]
